FAERS Safety Report 8431103-2 (Version None)
Quarter: 2012Q2

REPORT INFORMATION
  Report Type: 
  Country: None (occurrence: None)
  Receive Date: 20120612
  Receipt Date: 20120518
  Transmission Date: 20120825
  Serious: Yes (Death, Hospitalization, Other)
  Sender: FDA-Public Use
  Company Number: US-ROCHE-1051840

PATIENT
  Sex: Male
  Weight: 68 kg

DRUGS (32)
  1. VEMURAFENIB [Suspect]
     Indication: MALIGNANT MELANOMA
     Dosage: LAST DOSE PRIOR TO SAE ON 14/MAR/2012
     Route: 048
     Dates: start: 20120208, end: 20120314
  2. VEMURAFENIB [Suspect]
     Route: 048
     Dates: start: 20120404
  3. DEXAMETHASONE [Suspect]
     Indication: METASTASES TO CENTRAL NERVOUS SYSTEM
     Route: 048
     Dates: start: 20120202
  4. ACETAMINOPHEN [Concomitant]
     Dosage: AS REQUIRED
     Route: 048
     Dates: start: 20010101
  5. VICODIN [Concomitant]
     Dosage: TOTAL DAILY DOSE: 500/50MG AS REQUIRED
     Route: 048
     Dates: start: 20120101
  6. ZANTAC [Concomitant]
     Indication: PROPHYLAXIS
     Route: 048
     Dates: start: 20120101
  7. LEVOFLOXACIN [Concomitant]
     Dates: start: 20120314, end: 20120319
  8. CARDENE [Concomitant]
     Dosage: 4 MG/HR
     Route: 042
     Dates: start: 20120420, end: 20120420
  9. ESOMEPRAZOLE [Concomitant]
     Route: 048
     Dates: start: 20120420, end: 20120510
  10. PHENYTOIN [Concomitant]
     Route: 042
     Dates: start: 20120424, end: 20120424
  11. KEPPRA [Concomitant]
     Route: 048
     Dates: start: 20120424, end: 20120510
  12. LISINOPRIL [Concomitant]
     Route: 048
     Dates: start: 20100101
  13. KEPPRA [Concomitant]
     Indication: PROPHYLAXIS
     Route: 048
     Dates: start: 20120201
  14. DOCUSATE [Concomitant]
     Route: 048
     Dates: start: 20120501, end: 20120510
  15. ALTEPLASE [Concomitant]
     Dosage: SINGLE DOSE
     Route: 042
  16. MORPHINE [Concomitant]
     Route: 042
     Dates: start: 20120510, end: 20120512
  17. HYDRALAZINE HYDROCHLORIDE [Concomitant]
     Route: 048
     Dates: start: 20120501, end: 20120510
  18. KEPPRA [Concomitant]
     Route: 042
     Dates: start: 20120420, end: 20120424
  19. HEPARIN LOCK-FLUSH [Concomitant]
     Route: 042
     Dates: start: 20120319
  20. ESMOLOL HCL [Concomitant]
     Route: 042
     Dates: start: 20120420, end: 20120420
  21. OMEPRAZOLE [Concomitant]
     Indication: PROPHYLAXIS
     Route: 048
     Dates: start: 20120202, end: 20120208
  22. DEXTROSE/POTASSIUM CHLORIDE [Concomitant]
     Dosage: 75 ML/HR
     Route: 041
     Dates: start: 20120305, end: 20120310
  23. LISINOPRIL [Concomitant]
     Route: 048
     Dates: start: 20120501, end: 20120510
  24. PHENYTOIN [Concomitant]
     Route: 042
     Dates: start: 20120424, end: 20120510
  25. FAMOTIDINE [Concomitant]
     Route: 048
     Dates: start: 20120501, end: 20120510
  26. METOPROLOL [Concomitant]
     Route: 048
     Dates: start: 20120501, end: 20120510
  27. OMEPRAZOLE [Concomitant]
     Dates: start: 20120208
  28. DOCUSATE [Concomitant]
     Route: 048
     Dates: start: 20120319, end: 20120322
  29. LISPRO INSULIN [Concomitant]
     Dosage: SLIDING SCALE
     Route: 058
     Dates: start: 20120319, end: 20120322
  30. LISPRO INSULIN [Concomitant]
     Dates: start: 20120319, end: 20120322
  31. SODIUM CHLORIDE [Concomitant]
     Route: 042
     Dates: start: 20120420, end: 20120423
  32. NYSTATIN [Concomitant]
     Route: 048
     Dates: start: 20120501, end: 20120510

REACTIONS (4)
  - HAEMORRHAGE [None]
  - HAEMORRHAGE INTRACRANIAL [None]
  - CONVULSION [None]
  - OSTEOMYELITIS [None]
